FAERS Safety Report 6422702-8 (Version None)
Quarter: 2009Q4

REPORT INFORMATION
  Report Type: 
  Country: None (occurrence: None)
  Receive Date: 20091028
  Receipt Date: 20091015
  Transmission Date: 20100525
  Serious: Yes (Other)
  Sender: FDA-Public Use
  Company Number: 2009US000548

PATIENT
  Age: 37 Year
  Sex: Female
  Weight: 65.8 kg

DRUGS (4)
  1. PROGRAF [Suspect]
     Indication: LIVER TRANSPLANT
     Dosage: 5 MG, BID, ORAL; 5 MG, IUD/QD, ORAL
     Route: 048
     Dates: start: 20020101
  2. PREDNISONE TAB [Concomitant]
  3. ASPIRIN [Concomitant]
  4. MAGNESIUM (MAGNESIUM) [Concomitant]

REACTIONS (3)
  - ABORTION SPONTANEOUS [None]
  - DRUG EXPOSURE DURING PREGNANCY [None]
  - PREGNANCY [None]
